FAERS Safety Report 8417927-6 (Version None)
Quarter: 2012Q2

REPORT INFORMATION
  Report Type: 
  Country: None (occurrence: None)
  Receive Date: 20120607
  Receipt Date: 20120524
  Transmission Date: 20120825
  Serious: Yes (Other)
  Sender: FDA-Public Use
  Company Number: FR-RANBAXY-2012RR-56559

PATIENT
  Age: 4 Year
  Sex: Male

DRUGS (6)
  1. TACROLIMUS [Interacting]
     Indication: IMMUNOSUPPRESSANT DRUG THERAPY
     Dosage: 2.5 MG/DAY
     Route: 065
     Dates: start: 20090901
  2. ENALAPRIL MALEATE [Concomitant]
     Indication: HYPERTENSION
     Dosage: 0.5 MG/KG/DAY
     Route: 065
  3. TACROLIMUS [Concomitant]
     Dosage: 2 MG/DAY
     Route: 065
  4. MYCOPHENOLATE MOFETIL [Concomitant]
     Indication: IMMUNOSUPPRESSANT DRUG THERAPY
     Dosage: UNK
     Route: 065
  5. PREDNISOLONE [Concomitant]
     Indication: IMMUNOSUPPRESSANT DRUG THERAPY
     Dosage: UNK
     Route: 065
  6. AMLODIPINE [Suspect]
     Indication: HYPERTENSION
     Dosage: 0.5 MG/KG/DAY
     Route: 065
     Dates: start: 20091001

REACTIONS (2)
  - DRUG INTERACTION [None]
  - DRUG LEVEL INCREASED [None]
